FAERS Safety Report 25047022 (Version 1)
Quarter: 2025Q1

REPORT INFORMATION
  Report Type: Spontaneous
  Country: GB (occurrence: GB)
  Receive Date: 20250306
  Receipt Date: 20250306
  Transmission Date: 20250409
  Serious: Yes (Other)
  Sender: PFIZER
  Company Number: GB-MHRA-TPP19783152C3776539YC1740758101452

PATIENT
  Age: 83 Year
  Sex: Male
  Weight: 80 kg

DRUGS (13)
  1. MEROPENEM [Interacting]
     Active Substance: MEROPENEM
     Indication: Ill-defined disorder
     Dates: start: 20250212
  2. COLISTIMETHATE SODIUM [Interacting]
     Active Substance: COLISTIMETHATE SODIUM
  3. AYMES SHAKE [Concomitant]
     Indication: Ill-defined disorder
     Dates: start: 20241220
  4. CARBOCYSTEINE [Concomitant]
     Active Substance: CARBOCYSTEINE
     Indication: Ill-defined disorder
     Dosage: 2 DF, 3X/DAY (2 CAPSULES 3 TIMES A DAY THEN REDUCE TO 2 CAP)
     Dates: start: 20231212
  5. POLYETHYLENE GLYCOL 3350\POTASSIUM CHLORIDE\SODIUM BICARBONATE\SODIUM [Concomitant]
     Active Substance: POLYETHYLENE GLYCOL 3350\POTASSIUM CHLORIDE\SODIUM BICARBONATE\SODIUM CHLORIDE
     Indication: Ill-defined disorder
     Dates: start: 20250212, end: 20250226
  6. COTRIMOXAZOLE [Concomitant]
     Active Substance: SULFAMETHOXAZOLE\TRIMETHOPRIM
     Indication: Ill-defined disorder
     Dosage: 1 DF, 2X/DAY (1 TABLET TWICE A DAY, ANTIBACTERIAL)
     Dates: start: 20250212, end: 20250219
  7. FERROUS SULFATE [Concomitant]
     Active Substance: FERROUS SULFATE
     Indication: Ill-defined disorder
     Dosage: 1 DF, DAILY (TAKE ONE ONCE DAILY)
     Dates: start: 20250107, end: 20250204
  8. BECLOMETHASONE\FORMOTEROL [Concomitant]
     Active Substance: BECLOMETHASONE\FORMOTEROL
     Indication: Ill-defined disorder
     Dosage: 2 DF, 2X/DAY (TWO DOSES INHALED TWICE A DAY VIA SPACER)
     Dates: start: 20231212
  9. LANSOPRAZOLE [Concomitant]
     Active Substance: LANSOPRAZOLE
     Indication: Ill-defined disorder
     Dosage: 1 DF, DAILY (TAKE ONE ONCE DAILY)
     Dates: start: 20240904
  10. NAPROXEN [Concomitant]
     Active Substance: NAPROXEN
     Indication: Ill-defined disorder
     Dosage: 1 DF, 2X/DAY (TAKE ONE TWICE DAILY)
     Dates: start: 20240904
  11. PREDNISOLONE [Concomitant]
     Active Substance: PREDNISOLONE
     Indication: Ill-defined disorder
     Dates: start: 20250110, end: 20250131
  12. ALBUTEROL [Concomitant]
     Active Substance: ALBUTEROL
     Indication: Ill-defined disorder
     Dates: start: 20241112
  13. ALBUTEROL [Concomitant]
     Active Substance: ALBUTEROL
     Indication: Ill-defined disorder
     Dates: start: 20250212, end: 20250213

REACTIONS (3)
  - Drug interaction [Unknown]
  - Eosinophilia [Unknown]
  - Rash [Unknown]

NARRATIVE: CASE EVENT DATE: 20250212
